FAERS Safety Report 13263901 (Version 3)
Quarter: 2017Q2

REPORT INFORMATION
  Report Type: Spontaneous
  Country: US (occurrence: US)
  Receive Date: 20170223
  Receipt Date: 20170609
  Transmission Date: 20170830
  Serious: No
  Sender: FDA-Public Use
  Company Number: US-PFIZER INC-2017080867

PATIENT
  Age: 63 Year
  Sex: Male

DRUGS (3)
  1. LYRICA [Suspect]
     Active Substance: PREGABALIN
     Indication: PAIN IN EXTREMITY
     Dosage: 300 MG, 2X/DAY ONE IN THE MORNING AND ONE AT NIGHT]
  2. MOTRIN [Concomitant]
     Active Substance: IBUPROFEN
     Dosage: UNK
  3. ALEVE [Concomitant]
     Active Substance: NAPROXEN SODIUM
     Dosage: UNK

REACTIONS (4)
  - Migraine [Unknown]
  - Pain in extremity [Unknown]
  - Withdrawal syndrome [Unknown]
  - Muscle spasms [Unknown]
